FAERS Safety Report 17223880 (Version 1)
Quarter: 2020Q1

REPORT INFORMATION
  Report Type: Spontaneous
  Country: GB (occurrence: GB)
  Receive Date: 20200102
  Receipt Date: 20200102
  Transmission Date: 20200409
  Serious: Yes (Other)
  Sender: FDA-Public Use
  Company Number: GB-TEVA-2019-GB-1160193

PATIENT
  Age: 35 Year
  Sex: Female
  Weight: 73.02 kg

DRUGS (2)
  1. GENETHICS EUROPE LORAZEPAM [Concomitant]
     Dosage: 1 MG
  2. LORAZEPAM. [Suspect]
     Active Substance: LORAZEPAM
     Indication: ANXIETY
     Dosage: 1 MG
     Route: 048
     Dates: start: 201907

REACTIONS (6)
  - Feeling hot [Recovering/Resolving]
  - Headache [Recovering/Resolving]
  - Reaction to colouring [Unknown]
  - Agitation [Recovering/Resolving]
  - Palpitations [Recovering/Resolving]
  - Pruritus [Recovering/Resolving]

NARRATIVE: CASE EVENT DATE: 201907
